FAERS Safety Report 5043761-3 (Version None)
Quarter: 2006Q3

REPORT INFORMATION
  Report Type: 
  Country: None (occurrence: None)
  Receive Date: 20060706
  Receipt Date: 20060629
  Transmission Date: 20061208
  Serious: Yes (Hospitalization)
  Sender: FDA-Public Use
  Company Number: FR-AVENTIS-200612336FR

PATIENT
  Age: 40 Year
  Sex: Female

DRUGS (6)
  1. BIRODOGYL [Suspect]
     Route: 048
     Dates: start: 20060207, end: 20060212
  2. NASACORT [Suspect]
     Dates: start: 20060224, end: 20060225
  3. EFFERALGAN CODEINE [Suspect]
     Indication: PYREXIA
     Route: 048
     Dates: start: 20060224, end: 20060225
  4. TOPREC [Suspect]
     Indication: PYREXIA
     Route: 048
     Dates: start: 20060224, end: 20060225
  5. VOGALENE LYOC [Suspect]
     Indication: NAUSEA
     Route: 048
     Dates: start: 20060224, end: 20060225
  6. VOGALENE LYOC [Suspect]
     Indication: VOMITING
     Route: 048
     Dates: start: 20060224, end: 20060225

REACTIONS (6)
  - ABDOMINAL PAIN [None]
  - BODY TEMPERATURE INCREASED [None]
  - COLITIS [None]
  - DIARRHOEA HAEMORRHAGIC [None]
  - NAUSEA [None]
  - VOMITING [None]
